FAERS Safety Report 17343122 (Version 4)
Quarter: 2020Q2

REPORT INFORMATION
  Report Type: Spontaneous
  Country: US (occurrence: US)
  Receive Date: 20200129
  Receipt Date: 20200625
  Transmission Date: 20200713
  Serious: No
  Sender: FDA-Public Use
  Company Number: US-VERTEX PHARMACEUTICALS-2020-001238

PATIENT
  Age: 12 Year
  Sex: Male
  Weight: 36 kg

DRUGS (2)
  1. TRIKAFTA [Suspect]
     Active Substance: ELEXACAFTOR\IVACAFTOR\TEZACAFTOR
     Indication: CYSTIC FIBROSIS
     Dosage: 2 ORANGE TABS100MG ELEXACAFTOR/50MG TEZACAFTOR/75MG IVACAFTOR AM; 1 LIGHT BUE TAB150MG IVACAFTOR PM
     Route: 048
     Dates: start: 20200122, end: 20200205
  2. KITABIS PAK [Concomitant]
     Active Substance: TOBRAMYCIN
     Dosage: UNK

REACTIONS (4)
  - Abdominal pain upper [Unknown]
  - Arthralgia [Unknown]
  - Dyspnoea [Unknown]
  - Blood bilirubin increased [Not Recovered/Not Resolved]

NARRATIVE: CASE EVENT DATE: 202002
